FAERS Safety Report 4695948-7 (Version None)
Quarter: 2005Q3

REPORT INFORMATION
  Report Type: 
  Country: None (occurrence: None)
  Receive Date: 20050608
  Receipt Date: 20040916
  Transmission Date: 20060218
  Serious: Yes (Other)
  Sender: FDA-Public Use
  Company Number: 380671

PATIENT

DRUGS (1)
  1. ISOTRETINOIN [Suspect]
     Dosage: ORAL
     Route: 048
     Dates: end: 20040624

REACTIONS (2)
  - NO ADVERSE EFFECT [None]
  - PREGNANCY [None]
